FAERS Safety Report 8805997 (Version 1)
Quarter: 2012Q4

REPORT INFORMATION
  Report Type: 
  Country: US (occurrence: US)
  Receive Date: 20120925
  Receipt Date: 20120925
  Transmission Date: 20130627
  Serious: No
  Sender: FDA-Public Use
  Company Number: US-009507513-1209USA005914

PATIENT
  Age: 2 Year
  Sex: Female
  Weight: 20.41 kg

DRUGS (2)
  1. CLARITIN ORAL SOLUTION [Suspect]
     Indication: HYPERSENSITIVITY
     Dosage: UNK, qd
     Route: 048
     Dates: start: 20120718
  2. CLARITIN ORAL SOLUTION [Suspect]
     Dosage: 5 mg, bid
     Route: 048
     Dates: start: 20120718

REACTIONS (1)
  - Accidental overdose [Unknown]
